FAERS Safety Report 9125160 (Version 2)
Quarter: 2013Q4

REPORT INFORMATION
  Report Type: Spontaneous
  Country: US (occurrence: US)
  Receive Date: 20130121
  Receipt Date: 20131121
  Transmission Date: 20140711
  Serious: Yes (Death, Hospitalization, Disabling)
  Sender: FDA-Public Use
  Company Number: US-ACTELION-A-NJ2012-60649

PATIENT
  Age: 21 Year
  Sex: Female
  Weight: 43.3 kg

DRUGS (6)
  1. TRACLEER [Suspect]
     Indication: PULMONARY ARTERIAL HYPERTENSION
     Dosage: 125 MG, BID
     Route: 048
     Dates: end: 20121228
  2. ADCIRCA [Concomitant]
  3. TYVASO [Concomitant]
  4. COUMADIN [Concomitant]
  5. PULMOZYME [Concomitant]
  6. OXYGEN [Concomitant]

REACTIONS (12)
  - Eisenmenger^s syndrome [Fatal]
  - Concomitant disease progression [Fatal]
  - Pulmonary arterial hypertension [Not Recovered/Not Resolved]
  - Disease progression [Not Recovered/Not Resolved]
  - Dyspnoea [Not Recovered/Not Resolved]
  - Oxygen saturation decreased [Not Recovered/Not Resolved]
  - Fatigue [Not Recovered/Not Resolved]
  - Pulmonary function test decreased [Not Recovered/Not Resolved]
  - Cardiac failure [Not Recovered/Not Resolved]
  - Right ventricular failure [Not Recovered/Not Resolved]
  - Fluid retention [Not Recovered/Not Resolved]
  - General physical health deterioration [Unknown]
